FAERS Safety Report 14304282 (Version 1)
Quarter: 2017Q4

REPORT INFORMATION
  Report Type: Spontaneous
  Country: DE (occurrence: DE)
  Receive Date: 20171219
  Receipt Date: 20171219
  Transmission Date: 20180321
  Serious: Yes (Hospitalization, Other)
  Sender: FDA-Public Use
  Company Number: DE-OTSUKA-KJ20051602

PATIENT
  Sex: Female

DRUGS (1)
  1. ABILIFY [Suspect]
     Active Substance: ARIPIPRAZOLE
     Indication: SCHIZOPHRENIA
     Dosage: 15 MG, UNK
     Route: 065
     Dates: start: 200412

REACTIONS (5)
  - Uterine dilation and curettage [Unknown]
  - Vanishing twin syndrome [Unknown]
  - Laparotomy [Unknown]
  - Ectopic pregnancy [Unknown]
  - Abdominal pain [Unknown]
